FAERS Safety Report 9493492 (Version 1)
Quarter: 2013Q3

REPORT INFORMATION
  Report Type: Spontaneous
  Country: DE (occurrence: DE)
  Receive Date: 20130902
  Receipt Date: 20130902
  Transmission Date: 20140515
  Serious: Yes (Life-Threatening, Other)
  Sender: FDA-Public Use
  Company Number: DE-PFIZER INC-2013248130

PATIENT
  Age: 21 Year
  Sex: Male

DRUGS (4)
  1. IDARUBICIN HCL [Suspect]
     Indication: ACUTE MYELOID LEUKAEMIA
     Dosage: 78 MG ABS
  2. CYTARABINE [Suspect]
     Indication: ACUTE MYELOID LEUKAEMIA
     Dosage: 17,6 G ABS
  3. VANCOMYCIN [Concomitant]
     Indication: ACUTE MYELOID LEUKAEMIA
  4. CEFTAZIDIME [Concomitant]
     Indication: ACUTE MYELOID LEUKAEMIA
     Dosage: UNK

REACTIONS (2)
  - Cardiac failure [Recovered/Resolved]
  - Febrile neutropenia [Recovered/Resolved]
